FAERS Safety Report 25219043 (Version 2)
Quarter: 2025Q2

REPORT INFORMATION
  Report Type: Spontaneous
  Country: US (occurrence: US)
  Receive Date: 20250421
  Receipt Date: 20250502
  Transmission Date: 20250716
  Serious: No
  Sender: ELI LILLY AND COMPANY
  Company Number: US-ELI_LILLY_AND_COMPANY-US202504016382

PATIENT
  Age: 60 Year
  Sex: Female

DRUGS (2)
  1. VERZENIO [Suspect]
     Active Substance: ABEMACICLIB
     Indication: Breast cancer female
     Dosage: 100 MG, BID
     Route: 048
     Dates: start: 20250228
  2. VERZENIO [Suspect]
     Active Substance: ABEMACICLIB
     Dosage: 50 MG, BID
     Route: 048
     Dates: start: 20250418

REACTIONS (14)
  - Haemorrhage [Unknown]
  - Hot flush [Unknown]
  - Nervousness [Unknown]
  - Abdominal distension [Unknown]
  - Anxiety [Unknown]
  - Night sweats [Unknown]
  - Thirst [Unknown]
  - Contusion [Unknown]
  - Stress [Unknown]
  - Dysphoria [Unknown]
  - Depressed mood [Unknown]
  - Diarrhoea [Unknown]
  - Fatigue [Unknown]
  - Anaemia [Unknown]
